FAERS Safety Report 7409514-3 (Version None)
Quarter: 2011Q2

REPORT INFORMATION
  Report Type: 
  Country: None (occurrence: None)
  Receive Date: 20110412
  Receipt Date: 20110401
  Transmission Date: 20111010
  Serious: Yes (Hospitalization)
  Sender: FDA-Public Use
  Company Number: PHHO2011IT05025

PATIENT
  Sex: Male
  Weight: 69 kg

DRUGS (5)
  1. REPAGLINIDE [Concomitant]
     Indication: HYPERGLYCAEMIA
  2. MAALOX [Concomitant]
     Indication: ABDOMINAL PAIN UPPER
  3. DEURSIL [Concomitant]
     Indication: CHOLELITHIASIS
  4. AMN107 [Suspect]
     Dosage: UNK
     Dates: start: 20110322
  5. AMN107 [Suspect]
     Indication: CHRONIC MYELOID LEUKAEMIA
     Dosage: UNK
     Dates: start: 20051101, end: 20110321

REACTIONS (1)
  - FEMORAL ARTERY OCCLUSION [None]
